FAERS Safety Report 6855182-9 (Version None)
Quarter: 2010Q3

REPORT INFORMATION
  Report Type: 
  Country: None (occurrence: None)
  Receive Date: 20100717
  Receipt Date: 20081125
  Transmission Date: 20110219
  Serious: Yes (Other)
  Sender: FDA-Public Use
  Company Number: US-PFIZER INC-2007108415

PATIENT
  Age: 71 Year
  Sex: Male
  Weight: 60.317 kg

DRUGS (1)
  1. CHANTIX [Suspect]
     Indication: SMOKING CESSATION THERAPY
     Dosage: UNK
     Route: 048
     Dates: start: 20070818, end: 20070823

REACTIONS (3)
  - ERYTHEMA [None]
  - PRURITUS [None]
  - RASH PAPULAR [None]
